FAERS Safety Report 12925213 (Version 6)
Quarter: 2017Q1

REPORT INFORMATION
  Report Type: Report from Study
  Country: US (occurrence: US)
  Receive Date: 20161109
  Receipt Date: 20170316
  Transmission Date: 20170428
  Serious: Yes (Hospitalization)
  Sender: FDA-Public Use
  Company Number: US-ASTELLAS-2016US043421

PATIENT
  Age: 69 Year
  Sex: Female

DRUGS (2)
  1. ENZALUTAMIDE [Suspect]
     Active Substance: ENZALUTAMIDE
     Indication: BREAST CANCER
     Route: 048
     Dates: start: 20161018, end: 20161029
  2. ENZALUTAMIDE [Suspect]
     Active Substance: ENZALUTAMIDE
     Route: 048
     Dates: start: 20161219

REACTIONS (6)
  - Vomiting [Unknown]
  - Onychoclasis [Not Recovered/Not Resolved]
  - Depression [Unknown]
  - Rash [Unknown]
  - Pyrexia [Unknown]
  - Alopecia [Not Recovered/Not Resolved]

NARRATIVE: CASE EVENT DATE: 20161029
